FAERS Safety Report 23922540 (Version 1)
Quarter: 2024Q2

REPORT INFORMATION
  Report Type: Spontaneous
  Country: FR (occurrence: FR)
  Receive Date: 20240531
  Receipt Date: 20240531
  Transmission Date: 20240716
  Serious: Yes (Other)
  Sender: FDA-Public Use
  Company Number: FR-AFSSAPS-AVNT2024000377

PATIENT
  Age: 59 Year
  Sex: Male

DRUGS (1)
  1. DIAZEPAM [Suspect]
     Active Substance: DIAZEPAM
     Indication: Product used for unknown indication
     Dosage: UNK (2 OU 3 CPS PAR PRISE, 3X/J)
     Route: 048
     Dates: start: 2018

REACTIONS (1)
  - Drug use disorder [Not Recovered/Not Resolved]
